FAERS Safety Report 15622601 (Version 5)
Quarter: 2020Q2

REPORT INFORMATION
  Report Type: Spontaneous
  Country: CA (occurrence: CA)
  Receive Date: 20181115
  Receipt Date: 20200615
  Transmission Date: 20200713
  Serious: Yes (Other)
  Sender: FDA-Public Use
  Company Number: CA-PFIZER INC-2018464216

PATIENT
  Age: 31 Year
  Sex: Female

DRUGS (3)
  1. CISPLATIN. [Suspect]
     Active Substance: CISPLATIN
     Indication: OVARIAN GERM CELL ENDODERMAL SINUS TUMOUR STAGE III
     Dosage: UNK, CYCLIC (ADJUVANT CHEMOTHERAPY)
  2. BLEOMYCIN SULFATE [Suspect]
     Active Substance: BLEOMYCIN SULFATE
     Indication: OVARIAN GERM CELL ENDODERMAL SINUS TUMOUR STAGE III
     Dosage: UNK, CYCLIC (ADJUVANT CHEMOTHERAPY)
  3. ETOPOSIDE. [Suspect]
     Active Substance: ETOPOSIDE
     Indication: OVARIAN GERM CELL ENDODERMAL SINUS TUMOUR STAGE III
     Dosage: UNK, CYCLIC (ADJUVANT CHEMOTHERAPY)

REACTIONS (11)
  - Diarrhoea [Unknown]
  - Extrapyramidal disorder [Unknown]
  - Headache [Unknown]
  - Nausea [Unknown]
  - Dizziness [Unknown]
  - Dyspnoea [Unknown]
  - Pancytopenia [Unknown]
  - Hypoacusis [Unknown]
  - Tinnitus [Unknown]
  - Vomiting [Unknown]
  - Neutropenia [Unknown]
